FAERS Safety Report 13585258 (Version 1)
Quarter: 2017Q2

REPORT INFORMATION
  Report Type: Spontaneous
  Country: US (occurrence: US)
  Receive Date: 20170526
  Receipt Date: 20170526
  Transmission Date: 20170830
  Serious: No
  Sender: FDA-Public Use
  Company Number: US-BAYER-2017-090149

PATIENT
  Age: 81 Year
  Sex: Female

DRUGS (6)
  1. LETAIRIS [Concomitant]
     Active Substance: AMBRISENTAN
  2. CLARITIN-D 12 HOUR [Suspect]
     Active Substance: LORATADINE\PSEUDOEPHEDRINE SULFATE
     Indication: VIRAL UPPER RESPIRATORY TRACT INFECTION
  3. ADCIRCA [Concomitant]
     Active Substance: TADALAFIL
  4. SALINEX NASAL [Concomitant]
  5. CLARITIN-D 12 HOUR [Suspect]
     Active Substance: LORATADINE\PSEUDOEPHEDRINE SULFATE
     Indication: HYPERSENSITIVITY
     Dosage: 1/4 TABLET MORNING AND NIGHT
     Route: 048
  6. UPTRAVI [Concomitant]
     Active Substance: SELEXIPAG

REACTIONS (3)
  - Product use issue [None]
  - Nasal congestion [Unknown]
  - Wrong technique in product usage process [Unknown]
